FAERS Safety Report 20630895 (Version 2)
Quarter: 2022Q2

REPORT INFORMATION
  Report Type: Spontaneous
  Country: CZ (occurrence: CZ)
  Receive Date: 20220324
  Receipt Date: 20220420
  Transmission Date: 20220721
  Serious: Yes (Other)
  Sender: FDA-Public Use
  Company Number: CZ-CELLTRION HEALTHCARE HUNGARY KFT-2021CZ019025

PATIENT

DRUGS (1)
  1. REMICADE [Suspect]
     Active Substance: INFLIXIMAB
     Indication: Inflammatory bowel disease
     Dosage: 5 MG/KG
     Route: 042

REACTIONS (6)
  - Skin reaction [Unknown]
  - Adverse event [Unknown]
  - Neoplasm malignant [Unknown]
  - Hypersensitivity [Unknown]
  - Infection [Unknown]
  - Arthralgia [Unknown]
